FAERS Safety Report 12473344 (Version 1)
Quarter: 2016Q2

REPORT INFORMATION
  Report Type: Spontaneous
  Country: US (occurrence: US)
  Receive Date: 20160616
  Receipt Date: 20160616
  Transmission Date: 20160815
  Serious: Yes (Other)
  Sender: FDA-Public Use
  Company Number: US-TEVA-668784USA

PATIENT
  Age: 7 Year
  Sex: Male

DRUGS (3)
  1. FLUTICASONE 115 ?G, SALMETEROL 21 ?G [Suspect]
     Active Substance: FLUTICASONE PROPIONATE\SALMETEROL XINAFOATE
     Indication: ASTHMA
     Dosage: FLUTICASONE/SALMETEROL 115MCG/21MCG ; 2 PUFFS TWICE DAILY
  2. MOMETASONE FUROATE. [Suspect]
     Active Substance: MOMETASONE FUROATE
     Indication: RHINITIS ALLERGIC
     Dosage: ONE SPRAY EACH NOSTRIL
     Route: 045
  3. PREDNISOLONE. [Suspect]
     Active Substance: PREDNISOLONE
     Dosage: ORAL CORTICOSTEROID BURSTS OF PREDNISOLONE UP TO 3 TIMES/YEAR
     Route: 048

REACTIONS (2)
  - Adrenal suppression [Recovered/Resolved]
  - Growth retardation [Recovered/Resolved]
